FAERS Safety Report 5711486-4 (Version None)
Quarter: 2008Q2

REPORT INFORMATION
  Report Type: 
  Country: None (occurrence: None)
  Receive Date: 20080421
  Receipt Date: 20080411
  Transmission Date: 20081010
  Serious: Yes (Hospitalization, Other)
  Sender: FDA-Public Use
  Company Number: US-MERCK-0705USA02807

PATIENT
  Age: 81 Year
  Sex: Female

DRUGS (2)
  1. FOSAMAX [Suspect]
     Indication: OSTEOPOROSIS
     Route: 048
     Dates: start: 19980101
  2. FOSAMAX PLUS D [Concomitant]
     Indication: OSTEOPOROSIS
     Route: 048
     Dates: start: 19980101

REACTIONS (10)
  - BLADDER CANCER [None]
  - DENTAL CARIES [None]
  - EXOSTOSIS [None]
  - JAW DISORDER [None]
  - MYOCARDIAL INFARCTION [None]
  - ORAL PAIN [None]
  - OSTEONECROSIS [None]
  - PARAESTHESIA [None]
  - SWELLING [None]
  - TRISMUS [None]
